FAERS Safety Report 20141249 (Version 5)
Quarter: 2022Q2

REPORT INFORMATION
  Report Type: Report from Study
  Country: MX (occurrence: MX)
  Receive Date: 20211202
  Receipt Date: 20220601
  Transmission Date: 20220720
  Serious: Yes (Other)
  Sender: FDA-Public Use
  Company Number: MX-BAYER-2021A230360

PATIENT
  Age: 83 Year
  Sex: Male

DRUGS (8)
  1. NEXAVAR [Suspect]
     Active Substance: SORAFENIB
     Indication: Hepatocellular carcinoma
     Dosage: 400 MG, BID
     Route: 048
     Dates: start: 20210617
  2. NEXAVAR [Suspect]
     Active Substance: SORAFENIB
     Indication: Hepatocellular carcinoma
     Dosage: 3 TABLETS (2 IN THE MORNING AND 1 AT NIGHT)
     Route: 048
     Dates: start: 20210721, end: 20211002
  3. NEXAVAR [Suspect]
     Active Substance: SORAFENIB
     Indication: Hepatocellular carcinoma
     Dosage: DAILY DOSE 600 MG (400 MG AND AT 12 HOURS 200 MG)
     Route: 048
  4. TRAMADOL [Concomitant]
     Active Substance: TRAMADOL
     Indication: Pain
     Dosage: 50 MG, TID
     Route: 048
     Dates: start: 20210705
  5. ALDACTONE-SALTUCIN [BUTIZIDE;SPIRONOLACTONE] [Concomitant]
     Indication: Oedema
     Dosage: 25 MG EVERY 3 DAYS
     Route: 048
     Dates: start: 20210705
  6. PROPRANOLOL HYDROCHLORIDE [Concomitant]
     Active Substance: PROPRANOLOL HYDROCHLORIDE
     Indication: Hypertension
     Dosage: 40 MG, BID
     Route: 048
     Dates: start: 20210705
  7. LACTULAX [Concomitant]
     Indication: Constipation
     Dosage: 10 ML, BID
     Dates: start: 20210705
  8. ESPAVEN [DIMETICONE] [Concomitant]
     Indication: Gastrointestinal disorder
     Dosage: 1 TABLET EVERY 12 HOURS
     Dates: start: 20210705

REACTIONS (17)
  - Gait inability [None]
  - Blister [None]
  - Abnormal loss of weight [Recovered/Resolved]
  - Vomiting [Recovered/Resolved]
  - Decreased appetite [Recovered/Resolved]
  - Diarrhoea [Recovered/Resolved]
  - Blister [None]
  - Acne [Recovered/Resolved]
  - Gait inability [Recovered/Resolved]
  - Skin lesion [Recovered/Resolved]
  - Skin lesion [Recovered/Resolved]
  - Acne [Not Recovered/Not Resolved]
  - Skin lesion [Recovering/Resolving]
  - Gait disturbance [Recovering/Resolving]
  - Acne [Recovering/Resolving]
  - Pruritus [Recovering/Resolving]
  - Gastrooesophageal reflux disease [Not Recovered/Not Resolved]

NARRATIVE: CASE EVENT DATE: 20210901
